FAERS Safety Report 8584615-5 (Version None)
Quarter: 2012Q3

REPORT INFORMATION
  Report Type: 
  Country: None (occurrence: None)
  Receive Date: 20120730
  Receipt Date: 20120718
  Transmission Date: 20120928
  Serious: Yes (Other)
  Sender: FDA-Public Use
  Company Number: KAD201203-000197

PATIENT
  Age: 49 Year
  Sex: Female
  Weight: 102.0593 kg

DRUGS (21)
  1. INTERFERON ALFACON-1 (INTERFERON ALFACON-1) [Suspect]
     Indication: HEPATITIS C
     Dosage: TREATED FOR WRONG GENOTYPE 1, 15 MCG/0.5ML, THRICE WEEKLY, INJECTION, SUBCUTANEOUS
     Route: 058
     Dates: start: 20110501
  2. INTERFERON ALFACON-1 (INTERFERON ALFACON-1) [Suspect]
     Indication: HEPATITIS C
     Dosage: TREATED FOR WRONG GENOTYPE 1, 15 MCG/0.5ML, THRICE WEEKLY, INJECTION, SUBCUTANEOUS
     Route: 058
     Dates: start: 20111108
  3. TOPAMAX [Concomitant]
  4. TRIAMCINOLONE ACETONIDE [Concomitant]
  5. PREDNISONE TAB [Concomitant]
  6. MOTRIN [Concomitant]
  7. HIBICLENS [Concomitant]
  8. FOSAMAX [Concomitant]
  9. CLONAZEPAM [Concomitant]
  10. RIBAVIRIN [Suspect]
     Indication: HEPATITIS C
     Dosage: 600 MG, 3 DAYS A WEEK, 600 MG IN MORNING AND EVENING, DAILY, ORAL
     Route: 048
     Dates: start: 20111108
  11. RIBAVIRIN [Suspect]
     Indication: HEPATITIS C
     Dosage: 600 MG, 3 DAYS A WEEK, 600 MG IN MORNING AND EVENING, DAILY, ORAL
     Route: 048
     Dates: start: 20110501
  12. XANAXIL [Concomitant]
  13. VENTOLIN [Concomitant]
  14. BACTROBAN [Concomitant]
  15. ISONIAZID [Concomitant]
  16. CALCIUM/VITAMIN D [Concomitant]
  17. METHADONE HYDROCHLORIDE [Suspect]
  18. CLINDAMYCIN PHOSPHATE [Concomitant]
  19. OXYGEN [Concomitant]
  20. DULERA [Concomitant]
  21. PHENERGAN HCL [Concomitant]

REACTIONS (17)
  - STAPHYLOCOCCAL SKIN INFECTION [None]
  - SKIN DISORDER [None]
  - MEDICATION ERROR [None]
  - INFLUENZA LIKE ILLNESS [None]
  - PAIN [None]
  - SKIN ULCER [None]
  - WHITE BLOOD CELL COUNT DECREASED [None]
  - FATIGUE [None]
  - LABORATORY TEST ABNORMAL [None]
  - PYREXIA [None]
  - RASH [None]
  - MALAISE [None]
  - IMPAIRED HEALING [None]
  - TOOTH DISORDER [None]
  - DEPRESSION [None]
  - BEDRIDDEN [None]
  - BLISTER [None]
